FAERS Safety Report 15350730 (Version 1)
Quarter: 2018Q3

REPORT INFORMATION
  Report Type: Report from Study
  Country: CN (occurrence: CN)
  Receive Date: 20180905
  Receipt Date: 20180905
  Transmission Date: 20181010
  Serious: Yes (Other)
  Sender: FDA-Public Use
  Company Number: CN-ROCHE-2177788

PATIENT

DRUGS (2)
  1. OXALIPLATIN. [Suspect]
     Active Substance: OXALIPLATIN
     Indication: GASTRIC CANCER
     Dosage: ON DAY1, 21 DAYS A CYCLE
     Route: 041
  2. CAPECITABINE. [Suspect]
     Active Substance: CAPECITABINE
     Indication: GASTRIC CANCER
     Dosage: ON DAY1?14,  21 DAYS A CYCLE
     Route: 065

REACTIONS (9)
  - Nausea [Unknown]
  - Fatigue [Unknown]
  - White blood cell count decreased [Unknown]
  - Sensory disturbance [Unknown]
  - Vomiting [Unknown]
  - Bone marrow failure [Unknown]
  - Renal injury [Unknown]
  - Diarrhoea [Unknown]
  - Hepatic function abnormal [Unknown]
